FAERS Safety Report 4303733-0 (Version None)
Quarter: 2004Q1

REPORT INFORMATION
  Report Type: 
  Country: None (occurrence: None)
  Receive Date: 20040225
  Receipt Date: 20030515
  Transmission Date: 20041129
  Serious: Yes (Hospitalization)
  Sender: FDA-Public Use
  Company Number: 200311986FR

PATIENT
  Age: 31 Year
  Sex: Female

DRUGS (1)
  1. LOMUSOL [Suspect]
     Indication: RHINITIS ALLERGIC
     Dates: start: 20030511, end: 20030513

REACTIONS (3)
  - DYSPNOEA [None]
  - EYELID PTOSIS [None]
  - OVERDOSE [None]
